FAERS Safety Report 5303569-8 (Version None)
Quarter: 2007Q2

REPORT INFORMATION
  Report Type: 
  Country: None (occurrence: None)
  Receive Date: 20070420
  Receipt Date: 20070410
  Transmission Date: 20071010
  Serious: Yes (Hospitalization)
  Sender: FDA-Public Use
  Company Number: HQWYE400112APR07

PATIENT
  Sex: Female

DRUGS (13)
  1. ENBREL [Suspect]
     Indication: RHEUMATOID ARTHRITIS
     Route: 058
     Dates: start: 20050426, end: 20070331
  2. RINDERON [Concomitant]
     Dosage: UNSPECIFIED
     Route: 061
  3. PREDNISOLONE [Concomitant]
     Indication: RHEUMATOID ARTHRITIS
     Dosage: UNSPECIFIED
     Route: 048
  4. ZANTAC [Concomitant]
     Dosage: UNSPECIFIED
     Route: 048
  5. GLORIAMIN [Concomitant]
     Dosage: UNSPECIFIED
     Route: 048
  6. HYALURONATE SODIUM [Concomitant]
     Indication: RHEUMATOID ARTHRITIS
     Dosage: UNSPECIFIED
     Route: 041
  7. VOLTAREN [Concomitant]
     Indication: RHEUMATOID ARTHRITIS
     Dosage: UNSPECIFIED
     Route: 054
  8. NAPAGELN [Concomitant]
     Indication: RHEUMATOID ARTHRITIS
     Dosage: UNSPECIFIED
     Route: 061
  9. SELTOUCH [Concomitant]
     Indication: RHEUMATOID ARTHRITIS
     Dosage: UNSPECIFIED
     Route: 061
  10. TALION [Concomitant]
     Dosage: UNSPECIFIED
     Route: 048
  11. XYLOCAINE [Concomitant]
     Indication: RHEUMATOID ARTHRITIS
     Dosage: UNSPECIFIED
     Route: 051
  12. PENICILLAMINE [Concomitant]
     Indication: RHEUMATOID ARTHRITIS
     Route: 048
  13. ASPARA-CA [Concomitant]
     Dosage: UNSPECIFIED
     Route: 048

REACTIONS (1)
  - PARALYSIS [None]
